FAERS Safety Report 11317249 (Version 1)
Quarter: 2015Q3

REPORT INFORMATION
  Report Type: Spontaneous
  Country: US (occurrence: US)
  Receive Date: 20150728
  Receipt Date: 20150728
  Transmission Date: 20151125
  Serious: No
  Sender: FDA-Public Use
  Company Number: US-009507513-1507USA010777

PATIENT
  Sex: Female

DRUGS (2)
  1. FOLLISTIM [Suspect]
     Active Substance: FOLLITROPIN
     Dosage: 250 UNITS (UNSPECIFIED FREQUENCY)
     Route: 058
  2. FOLLITROPIN BETA [Suspect]
     Active Substance: FOLLITROPIN
     Indication: PRODUCT USED FOR UNKNOWN INDICATION
     Dosage: 250 UNITS (UNKNOWN FREQUENCY)
     Route: 058

REACTIONS (3)
  - Drug dose omission [Unknown]
  - Device malfunction [Unknown]
  - No adverse event [Unknown]
